FAERS Safety Report 13371248 (Version 7)
Quarter: 2017Q4

REPORT INFORMATION
  Report Type: Report from Study
  Country: US (occurrence: US)
  Receive Date: 20170324
  Receipt Date: 20171019
  Transmission Date: 20180320
  Serious: Yes (Hospitalization)
  Sender: FDA-Public Use
  Company Number: US-ACTELION-A-NJ2016-139604

PATIENT
  Age: 61 Year
  Sex: Female
  Weight: 111.11 kg

DRUGS (5)
  1. ADEMPAS [Suspect]
     Active Substance: RIOCIGUAT
     Indication: PRODUCT USED FOR UNKNOWN INDICATION
     Dosage: 1 MG, UNK
     Route: 065
  2. OPSUMIT [Suspect]
     Active Substance: MACITENTAN
     Indication: PULMONARY ARTERIAL HYPERTENSION
     Dosage: 10 MG, QD
     Route: 048
     Dates: start: 20151020
  3. METOPROLOL. [Concomitant]
     Active Substance: METOPROLOL
     Dosage: 25 MG, BID
  4. QUINAPRIL. [Concomitant]
     Active Substance: QUINAPRIL
  5. OPSUMIT [Suspect]
     Active Substance: MACITENTAN
     Dosage: 10 MG, QD
     Route: 048

REACTIONS (12)
  - Contusion [Unknown]
  - Migraine [Unknown]
  - Dyspepsia [Unknown]
  - Salivary gland disorder [Unknown]
  - Memory impairment [Unknown]
  - Dyspnoea exertional [Not Recovered/Not Resolved]
  - Diarrhoea [Unknown]
  - Palpitations [Unknown]
  - Hypotension [Unknown]
  - Syncope [Unknown]
  - Peripheral swelling [Unknown]
  - Dyspnoea [Unknown]

NARRATIVE: CASE EVENT DATE: 201606
